FAERS Safety Report 13442029 (Version 1)
Quarter: 2017Q2

REPORT INFORMATION
  Report Type: Other
  Country: US (occurrence: US)
  Receive Date: 20170413
  Receipt Date: 20170413
  Transmission Date: 20170830
  Serious: Yes (Other)
  Sender: FDA-Public Use
  Company Number: US-ACTELION-A-CH2017-151979

PATIENT
  Age: 30 Year
  Sex: Female

DRUGS (5)
  1. ENOXAPARIN [Concomitant]
     Active Substance: ENOXAPARIN
     Dosage: 40 MG, QD
  2. EPOPROSTENOL SODIUM. [Suspect]
     Active Substance: EPOPROSTENOL SODIUM
     Dosage: 2 NG/KG, PER MIN
     Route: 042
  3. SILDENAFIL. [Concomitant]
     Active Substance: SILDENAFIL
     Indication: PULMONARY ARTERIAL HYPERTENSION
     Dosage: 20 MG, TID
  4. ENOXAPARIN [Concomitant]
     Active Substance: ENOXAPARIN
     Indication: COAGULOPATHY
     Dosage: 1 MG/KG, BID
  5. EPOPROSTENOL SODIUM. [Suspect]
     Active Substance: EPOPROSTENOL SODIUM
     Indication: PULMONARY ARTERIAL HYPERTENSION
     Dosage: 20 NG/KG, PER MIN
     Route: 042

REACTIONS (5)
  - Precipitate labour [Unknown]
  - Thrombocytopenia [Unknown]
  - Exposure during pregnancy [Unknown]
  - Induced labour [Unknown]
  - Normal newborn [Unknown]
